FAERS Safety Report 20332137 (Version 1)
Quarter: 2022Q1

REPORT INFORMATION
  Report Type: Spontaneous
  Country: SA (occurrence: SA)
  Receive Date: 20220113
  Receipt Date: 20220113
  Transmission Date: 20220423
  Serious: Yes (Hospitalization, Other)
  Sender: FDA-Public Use
  Company Number: SA-PURDUE-USA-2022-0290692

PATIENT
  Age: 37 Year
  Sex: Male
  Weight: 80 kg

DRUGS (3)
  1. OXYCODONE HYDROCHLORIDE [Suspect]
     Active Substance: OXYCODONE HYDROCHLORIDE
     Indication: Postoperative analgesia
     Dosage: 2 MG, UNK
     Route: 065
  2. ACETAMINOPHEN [Suspect]
     Active Substance: ACETAMINOPHEN
     Indication: Postoperative analgesia
     Dosage: 1 G, UNK
     Route: 065
  3. LORNOXICAM [Suspect]
     Active Substance: LORNOXICAM
     Indication: Postoperative analgesia
     Dosage: 16 MG, UNK
     Route: 065

REACTIONS (1)
  - Loss of consciousness [Recovered/Resolved]
